FAERS Safety Report 19519167 (Version 1)
Quarter: 2021Q3

REPORT INFORMATION
  Report Type: Spontaneous
  Country: US (occurrence: US)
  Receive Date: 20210709
  Receipt Date: 20210709
  Transmission Date: 20211014
  Serious: Yes (Other)
  Sender: FDA-Public Use
  Company Number: None

PATIENT
  Age: 71 Year
  Sex: Female
  Weight: 58.97 kg

DRUGS (1)
  1. GAMUNEX?C [Suspect]
     Active Substance: HUMAN IMMUNOGLOBULIN G
     Indication: MYOPATHY
     Dosage: ?          OTHER ROUTE:INJECTION?
     Dates: start: 20210616, end: 20210616

REACTIONS (4)
  - Pruritus [None]
  - Infusion related reaction [None]
  - Erythema [None]
  - Recalled product administered [None]

NARRATIVE: CASE EVENT DATE: 20210616
